FAERS Safety Report 7888229-1 (Version None)
Quarter: 2011Q4

REPORT INFORMATION
  Report Type: 
  Country: None (occurrence: None)
  Receive Date: 20111103
  Receipt Date: 20110504
  Transmission Date: 20120403
  Serious: Yes (Hospitalization)
  Sender: FDA-Public Use
  Company Number: IS-SANOFI-AVENTIS-2011SA071366

PATIENT
  Age: 31 Year
  Sex: Female

DRUGS (1)
  1. MULTAQ [Suspect]
     Indication: ATRIAL TACHYCARDIA
     Dosage: 400 MG TWICE A DAY
     Route: 065
     Dates: start: 20110415, end: 20110418

REACTIONS (1)
  - HEADACHE [None]
